FAERS Safety Report 9531066 (Version 1)
Quarter: 2013Q2

REPORT INFORMATION
  Report Type: Spontaneous
  Country: US (occurrence: None)
  Receive Date: 20130418
  Receipt Date: 20130418
  Transmission Date: 20140414
  Serious: Yes (Hospitalization, Other)
  Sender: FDA-Public Use
  Company Number: 1301USA001239

PATIENT
  Age: 70 Year
  Sex: Female

DRUGS (6)
  1. SINGULAIR (MONTELUKAST SODIUM) TABLET [Suspect]
     Indication: GASTRITIS
  2. PAXIL (PAROXETINE HYDROCHLORIDE) [Suspect]
     Indication: DEPRESSION
  3. MYLANTA (ALUMINUM HYDROXIDE, MAGNESIUM HYDROXIDE, SIMETHICONE) [Suspect]
  4. TIKOSYN (DOFETILIDE) [Suspect]
     Dosage: TOTAL
     Route: 048
  5. COUMADIN (WARFARIN SODIUM) [Concomitant]
  6. OS-CAL (CALCIUM CARBONATE) [Concomitant]

REACTIONS (3)
  - Somnolence [None]
  - Pruritus [None]
  - Gastritis [None]
